FAERS Safety Report 4738091-0 (Version None)
Quarter: 2005Q3

REPORT INFORMATION
  Report Type: 
  Country: None (occurrence: None)
  Receive Date: 20050809
  Receipt Date: 20050727
  Transmission Date: 20060218
  Serious: Yes (Death, Hospitalization)
  Sender: FDA-Public Use
  Company Number: JP-JNJFOC-20050705238

PATIENT
  Age: 83 Year
  Sex: Male

DRUGS (6)
  1. TAVANIC [Suspect]
     Route: 048
     Dates: start: 20050415, end: 20050427
  2. ASPEGIC 325 [Concomitant]
     Route: 065
  3. FUMAFER [Concomitant]
     Route: 065
  4. DECAPEPTYL [Concomitant]
     Indication: PROSTATE CANCER
     Route: 030
  5. OMEPRAZOLE [Concomitant]
     Dosage: GASTRO-RESISTANT CAPSULES
     Route: 048
  6. LASILIX [Concomitant]
     Route: 048

REACTIONS (3)
  - HENOCH-SCHONLEIN PURPURA [None]
  - PNEUMONIA ASPIRATION [None]
  - RESPIRATORY ARREST [None]
